FAERS Safety Report 16646361 (Version 1)
Quarter: 2019Q3

REPORT INFORMATION
  Report Type: Spontaneous
  Country: GB (occurrence: GB)
  Receive Date: 20190730
  Receipt Date: 20190730
  Transmission Date: 20191004
  Serious: Yes (Other)
  Sender: FDA-Public Use
  Company Number: GB-AUROBINDO-AUR-APL-2019-044049

PATIENT

DRUGS (2)
  1. TEMAZEPAM. [Concomitant]
     Active Substance: TEMAZEPAM
     Indication: PRODUCT USED FOR UNKNOWN INDICATION
     Dosage: UNK
     Route: 065
  2. TRAMADOL HARD CAPSULE [Suspect]
     Active Substance: TRAMADOL
     Indication: SCIATICA
     Dosage: 200 MILLIGRAM, 1 TOTAL, UP TO 8 CAPSULES PER DAY
     Route: 048
     Dates: start: 20181217, end: 20190228

REACTIONS (4)
  - Agitation [Recovered/Resolved]
  - Constipation [Unknown]
  - Insomnia [Recovered/Resolved]
  - Restlessness [Recovered/Resolved]

NARRATIVE: CASE EVENT DATE: 20181218
